FAERS Safety Report 18381329 (Version 1)
Quarter: 2020Q4

REPORT INFORMATION
  Report Type: Spontaneous
  Country: FR (occurrence: FR)
  Receive Date: 20201014
  Receipt Date: 20201014
  Transmission Date: 20210114
  Serious: Yes (Hospitalization)
  Sender: FDA-Public Use
  Company Number: FR-ACCORD-204681

PATIENT
  Age: 56 Year
  Sex: Male

DRUGS (6)
  1. OXALIPLATIN ACCORD [Suspect]
     Active Substance: OXALIPLATIN
     Indication: ADENOCARCINOMA OF COLON
     Dosage: STRENGTH-5 MG / ML,
     Route: 041
     Dates: start: 20200917, end: 20200917
  2. IRINOTECAN ACCORD [Concomitant]
     Active Substance: IRINOTECAN
     Indication: ADENOCARCINOMA OF COLON
     Dosage: STRENGTH-20 MG/ML,
     Route: 041
     Dates: start: 20200819
  3. CALCIUM LEVOFOLINATE ZENTIVA [Concomitant]
     Active Substance: LEVOLEUCOVORIN CALCIUM
     Indication: TOXICITY TO VARIOUS AGENTS
     Dosage: STRENGTH-10 MG / ML, SOLUTION FOR INJECTION (IV)
     Route: 041
     Dates: start: 20200819
  4. EMEND [Concomitant]
     Active Substance: APREPITANT
     Indication: PROPHYLAXIS OF NAUSEA AND VOMITING
     Dosage: STRENGTH-125 MG, 125 J1, 80 MG J2 ET J3
     Route: 048
     Dates: start: 20200818
  5. FLUOROURACIL ACCORD [Concomitant]
     Active Substance: FLUOROURACIL
     Indication: ADENOCARCINOMA OF COLON
     Dosage: STRENGTH-50 MG / ML,500 MG + 4000 MG/48H
     Route: 041
     Dates: start: 20200819
  6. METHYLPREDNISOLONE MYLAN [Concomitant]
     Active Substance: METHYLPREDNISOLONE
     Indication: ADENOCARCINOMA OF COLON
     Route: 042
     Dates: start: 20200818

REACTIONS (1)
  - Transient ischaemic attack [Recovered/Resolved]

NARRATIVE: CASE EVENT DATE: 20200917
